FAERS Safety Report 10785208 (Version 1)
Quarter: 2015Q1

REPORT INFORMATION
  Report Type: Spontaneous
  Country: US (occurrence: None)
  Receive Date: 20150209
  Receipt Date: 20150209
  Transmission Date: 20150721
  Serious: Yes (Hospitalization)
  Sender: FDA-Public Use
  Company Number: NSR_01802_2015

PATIENT
  Age: 8 Month
  Sex: Male

DRUGS (1)
  1. TRAMADOL [Suspect]
     Active Substance: TRAMADOL
     Indication: PRODUCT USED FOR UNKNOWN INDICATION
     Dosage: 200 MG (1-3 TABLETS)?

REACTIONS (10)
  - Accidental exposure to product by child [None]
  - Apnoea [None]
  - Generalised tonic-clonic seizure [None]
  - Sedation [None]
  - Accidental overdose [None]
  - Heart rate increased [None]
  - Exposure via ingestion [None]
  - Anoxia [None]
  - Respiratory depression [None]
  - Agitation [None]
